FAERS Safety Report 10082430 (Version 1)
Quarter: 2014Q2

REPORT INFORMATION
  Report Type: Spontaneous
  Country: US (occurrence: None)
  Receive Date: 20140415
  Receipt Date: 20140415
  Transmission Date: 20141212
  Serious: No
  Sender: FDA-Public Use
  Company Number: None

PATIENT
  Age: 55 Year
  Sex: Female
  Weight: 74.39 kg

DRUGS (16)
  1. DULOXETINE DR 20 MG CAPSULES STANDARD BLUE CAPSULE SIDE 1 2890 SIDE 2 2890 MFG ACTAVIS [Suspect]
     Indication: DEPRESSION
     Route: 048
     Dates: start: 20140310, end: 20140317
  2. DULOXETINE DR 20 MG CAPSULES STANDARD BLUE CAPSULE SIDE 1 2890 SIDE 2 2890 MFG ACTAVIS [Suspect]
     Indication: PAIN MANAGEMENT
     Route: 048
     Dates: start: 20140310, end: 20140317
  3. CLONAZEPAM [Concomitant]
  4. DHEA [Concomitant]
  5. DULOXETINE [Concomitant]
  6. FEXOFENADINE [Concomitant]
  7. FLUTICASONE [Concomitant]
  8. ADVARIC [Concomitant]
  9. HYDROCODONE-ACETAMINOPHEN [Concomitant]
  10. LIDOCAINE PATCH [Concomitant]
  11. MULTIPLE VITAMINS-MINERALS [Concomitant]
  12. NYSTATEN [Concomitant]
  13. OMEPRAZOLE [Concomitant]
  14. POLYETHYLENE GLYCO [Concomitant]
  15. PREDNISONE [Concomitant]
  16. VIT D3 [Concomitant]

REACTIONS (10)
  - Crying [None]
  - Product substitution issue [None]
  - Drug ineffective [None]
  - Emotional disorder [None]
  - Impaired work ability [None]
  - Pain [None]
  - Heart rate increased [None]
  - Insomnia [None]
  - Paraesthesia [None]
  - Anxiety [None]
